FAERS Safety Report 23750594 (Version 2)
Quarter: 2024Q4

REPORT INFORMATION
  Report Type: Spontaneous
  Country: US (occurrence: US)
  Receive Date: 20240417
  Receipt Date: 20241030
  Transmission Date: 20250115
  Serious: Yes (Death, Other)
  Sender: EXELIXIS
  Company Number: US-TAKEDA-2024TUS034475

PATIENT
  Age: 59 Year
  Sex: Male

DRUGS (4)
  1. CABOMETYX [Suspect]
     Active Substance: CABOZANTINIB S-MALATE
     Indication: Metastatic renal cell carcinoma
     Dosage: 60 MG, QD
     Route: 065
  2. CABOMETYX [Suspect]
     Active Substance: CABOZANTINIB S-MALATE
     Indication: Metastases to central nervous system
  3. IPILIMUMAB;NIVOLUMAB [Concomitant]
     Indication: Metastatic renal cell carcinoma
     Dosage: UNK
  4. IPILIMUMAB;NIVOLUMAB [Concomitant]
     Indication: Metastases to central nervous system

REACTIONS (1)
  - Cardiomyopathy [Fatal]
